FAERS Safety Report 4953952-5 (Version None)
Quarter: 2006Q1

REPORT INFORMATION
  Report Type: 
  Country: None (occurrence: None)
  Receive Date: 20060327
  Receipt Date: 20060314
  Transmission Date: 20060701
  Serious: Yes (Hospitalization)
  Sender: FDA-Public Use
  Company Number: US-JNJFOC-20060303848

PATIENT
  Sex: Female
  Weight: 54.43 kg

DRUGS (3)
  1. FENTANYL [Suspect]
     Indication: CANCER PAIN
     Route: 062
     Dates: start: 20060228
  2. PAXIL [Concomitant]
  3. KLONOPIN [Concomitant]

REACTIONS (2)
  - HYPOXIA [None]
  - UNRESPONSIVE TO VERBAL STIMULI [None]
